FAERS Safety Report 9520982 (Version 1)
Quarter: 2013Q1

REPORT INFORMATION
  Report Type: Spontaneous
  Country: US (occurrence: None)
  Receive Date: 20130305
  Receipt Date: 20130305
  Transmission Date: 20140127
  Serious: Yes (Other)
  Sender: FDA-Public Use
  Company Number: 163-21880-11072749

PATIENT
  Age: 76 Year
  Sex: Female

DRUGS (7)
  1. REVLIMID [Suspect]
     Indication: PLASMA CELL MYELOMA
     Route: 048
     Dates: start: 20110308
  2. ASA (ACETYLSALICYLIC ACID) (UNKNOWN) [Concomitant]
  3. NIFEDIPINE ER (NIFEDIPINE) (UNKNOWN) [Concomitant]
  4. OMEPRAZOLE (OMEPRAZOLE) (UNKNOWN) [Concomitant]
  5. KCL (POTASSIUM CHLORIDE) (UNKNOWN) [Concomitant]
  6. SIMVASTATIN [Concomitant]
  7. TYLENOL PM (TYLENOL PM) (UNKNOWN) [Concomitant]

REACTIONS (4)
  - Pancytopenia [None]
  - Agitation [None]
  - Tremor [None]
  - Fatigue [None]
